FAERS Safety Report 16997010 (Version 1)
Quarter: 2019Q4

REPORT INFORMATION
  Report Type: Spontaneous
  Country: NO (occurrence: NO)
  Receive Date: 20191105
  Receipt Date: 20191105
  Transmission Date: 20200122
  Serious: Yes (Hospitalization)
  Sender: FDA-Public Use
  Company Number: NO-GLAXOSMITHKLINE-NO2019EME198981

PATIENT

DRUGS (1)
  1. LAMICTAL [Suspect]
     Active Substance: LAMOTRIGINE
     Indication: BIPOLAR II DISORDER
     Dosage: UNK
     Dates: start: 20190906, end: 20190918

REACTIONS (15)
  - Oral mucosal eruption [Unknown]
  - Rash [Unknown]
  - Eye infection [Unknown]
  - Neck pain [Unknown]
  - Oropharyngeal pain [Unknown]
  - Mouth ulceration [Unknown]
  - Mouth swelling [Unknown]
  - Hand-foot-and-mouth disease [Unknown]
  - Pharyngeal ulceration [Unknown]
  - Genital ulceration [Unknown]
  - Swelling [Unknown]
  - Pruritus [Unknown]
  - Dry mouth [Unknown]
  - Swelling face [Unknown]
  - Conjunctivitis [Unknown]

NARRATIVE: CASE EVENT DATE: 20190921
